FAERS Safety Report 5567364-7 (Version None)
Quarter: 2007Q4

REPORT INFORMATION
  Report Type: 
  Country: None (occurrence: None)
  Receive Date: 20071214
  Receipt Date: 20071207
  Transmission Date: 20080405
  Serious: Yes (Life-Threatening)
  Sender: FDA-Public Use
  Company Number: 2007SP006756

PATIENT
  Age: 60 Year
  Sex: Male
  Weight: 67 kg

DRUGS (12)
  1. TEMODAL [Suspect]
     Indication: DISEASE RECURRENCE
     Dosage: 15 MG/M2; QD; PO; 100 MG/M2; QD; PO; 150 MG/M2; QD; PO; 150 MG/M2; PO
     Route: 048
     Dates: start: 20060920, end: 20060922
  2. TEMODAL [Suspect]
     Indication: GLIOBLASTOMA MULTIFORME
     Dosage: 15 MG/M2; QD; PO; 100 MG/M2; QD; PO; 150 MG/M2; QD; PO; 150 MG/M2; PO
     Route: 048
     Dates: start: 20060920, end: 20060922
  3. TEMODAL [Suspect]
     Indication: DISEASE RECURRENCE
     Dosage: 15 MG/M2; QD; PO; 100 MG/M2; QD; PO; 150 MG/M2; QD; PO; 150 MG/M2; PO
     Route: 048
     Dates: start: 20061105, end: 20061109
  4. TEMODAL [Suspect]
     Indication: GLIOBLASTOMA MULTIFORME
     Dosage: 15 MG/M2; QD; PO; 100 MG/M2; QD; PO; 150 MG/M2; QD; PO; 150 MG/M2; PO
     Route: 048
     Dates: start: 20061105, end: 20061109
  5. TEMODAL [Suspect]
     Indication: DISEASE RECURRENCE
     Dosage: 15 MG/M2; QD; PO; 100 MG/M2; QD; PO; 150 MG/M2; QD; PO; 150 MG/M2; PO
     Route: 048
     Dates: start: 20061222, end: 20061226
  6. TEMODAL [Suspect]
     Indication: GLIOBLASTOMA MULTIFORME
     Dosage: 15 MG/M2; QD; PO; 100 MG/M2; QD; PO; 150 MG/M2; QD; PO; 150 MG/M2; PO
     Route: 048
     Dates: start: 20061222, end: 20061226
  7. TEMODAL [Suspect]
     Indication: DISEASE RECURRENCE
     Dosage: 15 MG/M2; QD; PO; 100 MG/M2; QD; PO; 150 MG/M2; QD; PO; 150 MG/M2; PO
     Route: 048
     Dates: start: 20070119, end: 20070123
  8. TEMODAL [Suspect]
     Indication: GLIOBLASTOMA MULTIFORME
     Dosage: 15 MG/M2; QD; PO; 100 MG/M2; QD; PO; 150 MG/M2; QD; PO; 150 MG/M2; PO
     Route: 048
     Dates: start: 20070119, end: 20070123
  9. EXCEGRAN (CON.) [Concomitant]
  10. SELENICA-R (CON.) [Concomitant]
  11. GASTER (CON.) [Concomitant]
  12. MYSTAN (CON.) [Concomitant]

REACTIONS (6)
  - DISSEMINATED INTRAVASCULAR COAGULATION [None]
  - NEOPLASM PROGRESSION [None]
  - PNEUMONIA ASPIRATION [None]
  - SEPSIS [None]
  - VOMITING [None]
  - WHITE BLOOD CELL COUNT DECREASED [None]
